FAERS Safety Report 18542053 (Version 2)
Quarter: 2020Q4

REPORT INFORMATION
  Report Type: Spontaneous
  Country: DE (occurrence: DE)
  Receive Date: 20201124
  Receipt Date: 20201216
  Transmission Date: 20210114
  Serious: Yes (Other)
  Sender: FDA-Public Use
  Company Number: DE-TAKEDA-2020TUS047254

PATIENT
  Sex: Female

DRUGS (3)
  1. ELVANSE [Suspect]
     Active Substance: LISDEXAMFETAMINE DIMESYLATE
     Indication: ATTENTION DEFICIT HYPERACTIVITY DISORDER
     Route: 065
  2. VENLAFAXIN [Concomitant]
     Active Substance: VENLAFAXINE HYDROCHLORIDE
     Indication: MOOD SWINGS
     Dosage: 300 MILLIGRAM
  3. VENLAFAXIN [Concomitant]
     Active Substance: VENLAFAXINE HYDROCHLORIDE
     Indication: DEPRESSIVE SYMPTOM
     Dosage: 225 MILLIGRAM

REACTIONS (4)
  - Suicidal ideation [Unknown]
  - Mood swings [Not Recovered/Not Resolved]
  - Drug ineffective [Unknown]
  - Depressive symptom [Not Recovered/Not Resolved]
